FAERS Safety Report 8143488-5 (Version None)
Quarter: 2012Q1

REPORT INFORMATION
  Report Type: 
  Country: None (occurrence: None)
  Receive Date: 20120217
  Receipt Date: 20120215
  Transmission Date: 20120608
  Serious: No
  Sender: FDA-Public Use
  Company Number: US-PFIZER INC-K201100281

PATIENT
  Sex: Male

DRUGS (2)
  1. XANAX [Concomitant]
     Indication: ANXIETY
     Dosage: UNK
  2. AVINZA [Suspect]
     Indication: PAIN
     Dosage: UNK

REACTIONS (5)
  - DEPRESSION [None]
  - MICTURITION DISORDER [None]
  - WEIGHT INCREASED [None]
  - CONSTIPATION [None]
  - FEELING ABNORMAL [None]
